FAERS Safety Report 13396473 (Version 2)
Quarter: 2017Q2

REPORT INFORMATION
  Report Type: Report from Study
  Country: JP (occurrence: JP)
  Receive Date: 20170403
  Receipt Date: 20170428
  Transmission Date: 20170830
  Serious: Yes (Hospitalization)
  Sender: FDA-Public Use
  Company Number: JP-ASTRAZENECA-2017SE24495

PATIENT
  Age: 14626 Day
  Sex: Male

DRUGS (2)
  1. ONGLYZA [Suspect]
     Active Substance: SAXAGLIPTIN HYDROCHLORIDE
     Indication: TYPE 2 DIABETES MELLITUS
     Route: 048
     Dates: start: 20150214, end: 20151104
  2. METGLUCO [Concomitant]
     Active Substance: METFORMIN HYDROCHLORIDE
     Indication: TYPE 2 DIABETES MELLITUS
     Dosage: 500.0MG UNKNOWN
     Route: 048
     Dates: start: 20150214, end: 20151104

REACTIONS (3)
  - Skin ulcer [Unknown]
  - Diabetes mellitus inadequate control [Unknown]
  - Thermal burn [Unknown]

NARRATIVE: CASE EVENT DATE: 20150820
